FAERS Safety Report 5559795-6 (Version None)
Quarter: 2007Q4

REPORT INFORMATION
  Report Type: 
  Country: None (occurrence: None)
  Receive Date: 20071214
  Receipt Date: 20071016
  Transmission Date: 20080405
  Serious: No
  Sender: FDA-Public Use
  Company Number: US-ABBOTT-07P-163-0420997-00

PATIENT
  Sex: Male

DRUGS (3)
  1. HUMIRA [Suspect]
     Indication: CROHN'S DISEASE
     Route: 058
     Dates: start: 20071010, end: 20071010
  2. HUMIRA [Suspect]
     Dates: start: 20071025, end: 20071025
  3. HUMIRA [Suspect]

REACTIONS (1)
  - SOMNOLENCE [None]
